FAERS Safety Report 7553677-6 (Version None)
Quarter: 2011Q2

REPORT INFORMATION
  Report Type: 
  Country: None (occurrence: None)
  Receive Date: 20110617
  Receipt Date: 20110612
  Transmission Date: 20111010
  Serious: Yes (Other)
  Sender: FDA-Public Use
  Company Number: US-AMGEN-USASP2011012749

PATIENT
  Age: 50 Year
  Sex: Female

DRUGS (2)
  1. ENBREL [Suspect]
     Indication: RHEUMATOID ARTHRITIS
     Dosage: 50 MG, QWK
     Dates: start: 20110301
  2. ENBREL [Suspect]
     Dosage: 50 MG, QWK
     Dates: start: 20110220

REACTIONS (11)
  - INJECTION SITE ERYTHEMA [None]
  - INJECTION SITE REACTION [None]
  - INJECTION SITE INDURATION [None]
  - INJECTION SITE PRURITUS [None]
  - INJECTION SITE STREAKING [None]
  - INJECTION SITE PAIN [None]
  - INSOMNIA [None]
  - NAUSEA [None]
  - INJECTION SITE SWELLING [None]
  - ANXIETY [None]
  - INJECTION SITE WARMTH [None]
